FAERS Safety Report 9511848 (Version 1)
Quarter: 2013Q1

REPORT INFORMATION
  Report Type: Spontaneous
  Country: US (occurrence: None)
  Receive Date: 20130305
  Receipt Date: 20130305
  Transmission Date: 20140127
  Serious: Yes (Other)
  Sender: FDA-Public Use
  Company Number: 163-21880-12103558

PATIENT
  Age: 73 Year
  Sex: Female
  Weight: 88.45 kg

DRUGS (11)
  1. REVLIMID [Suspect]
     Indication: PLASMA CELL MYELOMA
     Dosage: 10 MG, 1 IN 1 D, PO
     Route: 048
     Dates: start: 20111122
  2. ALLOPURINOL (ALLOPURINOL) (TABLETS) [Concomitant]
  3. ASPIRIN (ACETYLSALICYLIC ACID) (ENTERIC-COATED TABLET) [Concomitant]
  4. ATENOLOL (ATENOLOL) (TABLETS) [Concomitant]
  5. DEXAMETHASONE (DEXAMETHASONE) (TABLETS) [Concomitant]
  6. HYDROCHLOROTHIAZIDE (HYDROCHLOROTHIAZIDE) (TABLETS) [Concomitant]
  7. HYDROCODONE-ACETAMINOPHEN (REMEDEINE) (TABLETS) [Concomitant]
  8. PRILOSEC (OMEPROZOLE) (CAPSULES) [Concomitant]
  9. ZOLOFT (SERTRALINE HYDROCHLORIDE) (TABLETS) [Concomitant]
  10. ZOLPIDEM TARTRATE (ZOLPIDEM  TARTRATE) (TABLETS) [Concomitant]
  11. ZOMETA (ZOLEDRONIC ACID) (UNKNOWN) [Concomitant]

REACTIONS (3)
  - Haemoglobin decreased [None]
  - Platelet count decreased [None]
  - White blood cell count decreased [None]
